FAERS Safety Report 9487247 (Version 1)
Quarter: 2013Q3

REPORT INFORMATION
  Report Type: Spontaneous
  Country: US (occurrence: US)
  Receive Date: 20130829
  Receipt Date: 20130829
  Transmission Date: 20140515
  Serious: Yes (Other)
  Sender: FDA-Public Use
  Company Number: US-ELI_LILLY_AND_COMPANY-US201308006973

PATIENT
  Age: 73 Year
  Sex: Male
  Weight: 80.27 kg

DRUGS (1)
  1. HUMALOG LISPRO [Suspect]
     Dosage: UNK

REACTIONS (3)
  - Shock hypoglycaemic [Recovering/Resolving]
  - Blood glucose increased [Unknown]
  - Blood glucose decreased [Unknown]
